FAERS Safety Report 7620874-0 (Version None)
Quarter: 2011Q3

REPORT INFORMATION
  Report Type: 
  Country: None (occurrence: None)
  Receive Date: 20110719
  Receipt Date: 20090928
  Transmission Date: 20111222
  Serious: Yes (Hospitalization, Other)
  Sender: FDA-Public Use
  Company Number: US-BAYER-200938241NA

PATIENT
  Age: 55 Year
  Sex: Male
  Weight: 95 kg

DRUGS (10)
  1. PLAVIX [Concomitant]
  2. PREVACID [Concomitant]
  3. ACETYLSALICYLIC ACID SRT [Concomitant]
  4. LEVOPHED [Concomitant]
  5. TRASYLOL [Suspect]
     Indication: AORTIC VALVE REPLACEMENT
     Dosage: 200 ML PUMP PRIME DOSE
     Route: 042
     Dates: start: 20060328, end: 20060328
  6. PRAVACHOL [Concomitant]
  7. LOPRESSOR [Concomitant]
  8. VERSED [Concomitant]
  9. TRASYLOL [Suspect]
     Indication: PRODUCT USED FOR UNKNOWN INDICATION
     Dosage: 200ML BOLUS THEN 50ML/HR INFUSION
     Route: 042
     Dates: start: 20060328, end: 20060328
  10. FENTANYL-100 [Concomitant]

REACTIONS (11)
  - INJURY [None]
  - ANXIETY [None]
  - RENAL FAILURE [None]
  - STRESS [None]
  - RENAL INJURY [None]
  - FEAR [None]
  - ANHEDONIA [None]
  - UNEVALUABLE EVENT [None]
  - PAIN [None]
  - RENAL IMPAIRMENT [None]
  - EMOTIONAL DISTRESS [None]
